FAERS Safety Report 10031430 (Version 3)
Quarter: 2014Q4

REPORT INFORMATION
  Report Type: Spontaneous
  Country: US (occurrence: US)
  Receive Date: 20140324
  Receipt Date: 20141224
  Transmission Date: 20150528
  Serious: Yes (Hospitalization)
  Sender: FDA-Public Use
  Company Number: US-ROCHE-1369253

PATIENT
  Age: 25 Year
  Sex: Female
  Weight: 81.27 kg

DRUGS (4)
  1. XOLAIR [Suspect]
     Active Substance: OMALIZUMAB
     Indication: ASTHMA
     Route: 058
     Dates: start: 20050912
  2. PREDNISOLONE. [Concomitant]
     Active Substance: PREDNISOLONE
  3. ADVAIR DISKUS [Concomitant]
     Active Substance: FLUTICASONE PROPIONATE\SALMETEROL XINAFOATE
     Dosage: 500/50?1 PUFF BIB
     Route: 065
  4. VENTOLIN HFA [Concomitant]
     Active Substance: ALBUTEROL SULFATE
     Dosage: 2 PUFFS, AS REQUIRED
     Route: 065

REACTIONS (6)
  - Maternal exposure during pregnancy [Unknown]
  - Sinus tachycardia [Recovered/Resolved]
  - Pneumonia [Unknown]
  - Asthma [Unknown]
  - Hypokalaemia [Unknown]
  - Leukocytosis [Unknown]

NARRATIVE: CASE EVENT DATE: 20140311
